FAERS Safety Report 24091547 (Version 2)
Quarter: 2024Q3

REPORT INFORMATION
  Report Type: Report from Study
  Country: GR (occurrence: GR)
  Receive Date: 20240715
  Receipt Date: 20240805
  Transmission Date: 20241016
  Serious: Yes (Hospitalization, Other)
  Sender: PFIZER
  Company Number: GR-BAXTER-2024BAX012422

PATIENT
  Age: 69 Year
  Sex: Female
  Weight: 44 kg

DRUGS (17)
  1. DOXORUBICIN HYDROCHLORIDE [Suspect]
     Active Substance: DOXORUBICIN HYDROCHLORIDE
     Indication: Diffuse large B-cell lymphoma stage III
     Dosage: 35 MG, EVERY 3 WEEKS, ONGOING
     Route: 042
     Dates: start: 20231002, end: 20240117
  2. CYCLOPHOSPHAMIDE [Suspect]
     Active Substance: CYCLOPHOSPHAMIDE
     Indication: Diffuse large B-cell lymphoma
     Dosage: 560 MG, EVERY 3 WEEKS, ONGOING
     Route: 042
     Dates: start: 20231002, end: 20240117
  3. EPCORITAMAB [Suspect]
     Active Substance: EPCORITAMAB
     Indication: Diffuse large B-cell lymphoma
     Dosage: 48 MG, CYCLIC (C1 (STEP-UP))
     Route: 058
     Dates: start: 20231003
  4. EPCORITAMAB [Suspect]
     Active Substance: EPCORITAMAB
     Dosage: 48 MG, CYCLIC (CYCLES 2-4 (21-DAY CYCLE, WEEKLY)
     Route: 058
  5. EPCORITAMAB [Suspect]
     Active Substance: EPCORITAMAB
     Dosage: 48 MG, CYCLIC C5-8 (21-DAY CYCLE, EVERY 3 WEEKS) PER PROTOCOL EVERY 3 WEEKS)
     Route: 058
  6. PREDNISONE [Suspect]
     Active Substance: PREDNISONE
     Indication: Diffuse large B-cell lymphoma stage III
     Dosage: C1-C6; DAY 1-5, EVERY 1 DAYS, ONGOING
     Route: 048
     Dates: start: 20231002, end: 20240117
  7. RITUXIMAB [Suspect]
     Active Substance: RITUXIMAB
     Indication: Diffuse large B-cell lymphoma
     Dosage: 525 MG, EVERY 3 WEEKS, ONGOING
     Route: 042
     Dates: start: 20231002, end: 20240117
  8. VINCRISTINE [Suspect]
     Active Substance: VINCRISTINE
     Indication: Diffuse large B-cell lymphoma
     Dosage: 1 MG, EVERY 3 WEEKS
     Route: 042
     Dates: start: 20231002, end: 20240117
  9. ALLOPURINOL [Concomitant]
     Active Substance: ALLOPURINOL
     Indication: Prophylaxis
     Dosage: ( EVERY AFTERNOON)
     Dates: start: 20231002
  10. CALCIUM FOLINATE NK [Concomitant]
     Indication: Vitamin supplementation
     Dosage: 15 MG, 2/ WEEKS
     Dates: start: 20231005
  11. FILGRASTIM [Concomitant]
     Active Substance: FILGRASTIM
     Indication: Prophylaxis
     Dosage: (OCCASIONAL)
     Dates: start: 20231010
  12. LACTULOSE [Concomitant]
     Active Substance: LACTULOSE
     Indication: Constipation prophylaxis
     Dosage: (OCCASIONAL)
     Dates: start: 20231002
  13. OMEPRAZOLE SODIUM [Concomitant]
     Active Substance: OMEPRAZOLE SODIUM
     Indication: Gastrointestinal disorder prophylaxis
     Dosage: 20 MG, IN THE MORNING, EVERY 1 DAYS
     Dates: start: 20231002
  14. ONDANSETRON [Concomitant]
     Active Substance: ONDANSETRON
     Indication: Gastrointestinal disorder prophylaxis
     Dosage: 20 MG, 1X/DAY (20 MG IN THE MORNING, EVERY 1 DAYS)
     Dates: start: 20231002
  15. POSACONAZOLE [Concomitant]
     Active Substance: POSACONAZOLE
     Indication: Antifungal prophylaxis
     Dosage: (EVERY AFTERNOON)
     Dates: start: 20231005
  16. TRIMETHOPRIM NTN [Concomitant]
     Indication: Antifungal prophylaxis
     Dosage: 960 MG, 3/WEEKS
     Dates: start: 20231005
  17. VALACYCLOVIR HYDROCHLORIDE [Concomitant]
     Active Substance: VALACYCLOVIR HYDROCHLORIDE
     Indication: Antiviral prophylaxis
     Dosage: 500 MG, EVERY AFTERNOON
     Dates: start: 20231005

REACTIONS (2)
  - Cytomegalovirus infection reactivation [Recovered/Resolved]
  - Neutropenia [Recovered/Resolved]

NARRATIVE: CASE EVENT DATE: 20231010
